FAERS Safety Report 5915477-X (Version None)
Quarter: 2008Q4

REPORT INFORMATION
  Report Type: 
  Country: None (occurrence: None)
  Receive Date: 20081010
  Receipt Date: 20081001
  Transmission Date: 20090506
  Serious: Yes (Other)
  Sender: FDA-Public Use
  Company Number: IN-BAXTER-2008BH009369

PATIENT
  Age: 11 Year
  Sex: Female

DRUGS (2)
  1. CYCLOPHOSPHAMIDE [Suspect]
     Indication: RETINOBLASTOMA UNILATERAL
     Dosage: DOSE UNIT:UNKNOWN
     Route: 065
  2. VINCRISTINE SULFATE [Suspect]
     Indication: RETINOBLASTOMA UNILATERAL
     Dosage: DOSE UNIT:UNKNOWN
     Route: 065

REACTIONS (1)
  - BONE SARCOMA [None]
